FAERS Safety Report 9398094 (Version 1)
Quarter: 2013Q3

REPORT INFORMATION
  Report Type: Spontaneous
  Country: US (occurrence: US)
  Receive Date: 20130712
  Receipt Date: 20130712
  Transmission Date: 20140515
  Serious: No
  Sender: FDA-Public Use
  Company Number: US-GLAXOSMITHKLINE-A0982336A

PATIENT
  Age: 76 Year
  Sex: Female

DRUGS (3)
  1. FLOVENT [Suspect]
     Indication: ASTHMA
     Dosage: 2PUFF TWICE PER DAY
     Route: 055
     Dates: start: 2006, end: 20120610
  2. VENTOLIN [Suspect]
     Indication: ASTHMA
     Route: 055
     Dates: start: 20120612
  3. NO CONCURRENT MEDICATION [Concomitant]

REACTIONS (4)
  - Lip swelling [Unknown]
  - Oral papule [Unknown]
  - Swelling face [Unknown]
  - Vision blurred [Unknown]
